FAERS Safety Report 21342328 (Version 1)
Quarter: 2022Q3

REPORT INFORMATION
  Report Type: Spontaneous
  Country: US (occurrence: None)
  Receive Date: 20220916
  Receipt Date: 20220916
  Transmission Date: 20221026
  Serious: Yes (Hospitalization)
  Sender: FDA-Public Use
  Company Number: None

PATIENT
  Age: 40 Year
  Sex: Male
  Weight: 88 kg

DRUGS (1)
  1. METHAMPHETAMINE HYDROCHLORIDE [Suspect]
     Active Substance: METHAMPHETAMINE HYDROCHLORIDE

REACTIONS (5)
  - Intentional self-injury [None]
  - Chest pain [None]
  - Pulmonary oedema [None]
  - Pulmonary congestion [None]
  - Intentional overdose [None]

NARRATIVE: CASE EVENT DATE: 20220908
